FAERS Safety Report 12634751 (Version 7)
Quarter: 2020Q2

REPORT INFORMATION
  Report Type: Spontaneous
  Country: US (occurrence: US)
  Receive Date: 20160808
  Receipt Date: 20200529
  Transmission Date: 20200713
  Serious: Yes (Hospitalization, Other)
  Sender: FDA-Public Use
  Company Number: US-BIOMARINAP-US-2016-110664

PATIENT
  Age: 12 Year
  Sex: Male

DRUGS (5)
  1. ALDURAZYME [Suspect]
     Active Substance: LARONIDASE
     Dosage: UNK, QW
     Route: 041
     Dates: start: 20190225
  2. ALDURAZYME [Suspect]
     Active Substance: LARONIDASE
     Dosage: 11.60 MILLIGRAM, QW
     Route: 041
     Dates: start: 20200512
  3. ALDURAZYME [Suspect]
     Active Substance: LARONIDASE
     Dosage: UNK
     Route: 041
     Dates: start: 20181122
  4. ALDURAZYME [Suspect]
     Active Substance: LARONIDASE
     Indication: MUCOPOLYSACCHARIDOSIS I
     Dosage: 11.6 MILLIGRAM, QW
     Route: 041
     Dates: start: 20100505, end: 20160725
  5. ALDURAZYME [Suspect]
     Active Substance: LARONIDASE
     Dosage: UNK
     Route: 041
     Dates: start: 20140609

REACTIONS (6)
  - Disease progression [Unknown]
  - Off label use [Unknown]
  - Hospitalisation [Unknown]
  - Respiratory disorder [Unknown]
  - Drug ineffective [Unknown]
  - Pyrexia [Recovered/Resolved]

NARRATIVE: CASE EVENT DATE: 20181122
